FAERS Safety Report 7422709-8 (Version None)
Quarter: 2011Q2

REPORT INFORMATION
  Report Type: 
  Country: None (occurrence: None)
  Receive Date: 20110414
  Receipt Date: 20110414
  Transmission Date: 20111010
  Serious: Yes (Hospitalization)
  Sender: FDA-Public Use
  Company Number: None

PATIENT
  Sex: Male
  Weight: 99.9 kg

DRUGS (1)
  1. TORISEL [Suspect]
     Indication: PROSTATE CANCER
     Dosage: 25MG WEEKLY IV
     Route: 042
     Dates: start: 20100812, end: 20110317

REACTIONS (2)
  - METASTASES TO BONE [None]
  - BACK PAIN [None]
